FAERS Safety Report 8483883-8 (Version None)
Quarter: 2012Q2

REPORT INFORMATION
  Report Type: 
  Country: None (occurrence: None)
  Receive Date: 20120627
  Receipt Date: 20120627
  Transmission Date: 20120825
  Serious: No
  Sender: FDA-Public Use
  Company Number: None

PATIENT
  Age: 62 Year
  Sex: Female

DRUGS (2)
  1. PEGASYS [Suspect]
     Indication: HEPATITIS C
     Dosage: 180MCG SQ WEEKLY
     Route: 058
  2. RIBAVIRIN [Suspect]
     Dosage: 600MG PO BID
     Route: 048

REACTIONS (2)
  - BURNING SENSATION [None]
  - PARAESTHESIA [None]
